FAERS Safety Report 12247460 (Version 1)
Quarter: 2016Q2

REPORT INFORMATION
  Report Type: Report from Study
  Country: US (occurrence: US)
  Receive Date: 20160407
  Receipt Date: 20160407
  Transmission Date: 20160815
  Serious: Yes (Hospitalization)
  Sender: FDA-Public Use
  Company Number: US-TAKEDA-2014TUS003761

PATIENT
  Age: 73 Year
  Sex: Male
  Weight: 117.1 kg

DRUGS (9)
  1. PIOGLITAZONE. [Suspect]
     Active Substance: PIOGLITAZONE
     Indication: CARDIOVASCULAR EVENT PROPHYLAXIS
     Dosage: 15 MG, QD
     Route: 048
     Dates: start: 20090129, end: 20090303
  2. PIOGLITAZONE. [Suspect]
     Active Substance: PIOGLITAZONE
     Dosage: 30 MG, QD
     Route: 048
     Dates: start: 20090304, end: 20090330
  3. PIOGLITAZONE. [Suspect]
     Active Substance: PIOGLITAZONE
     Dosage: 45 MG, QD
     Route: 048
     Dates: start: 20090331, end: 20140328
  4. CELEXA [Concomitant]
     Active Substance: CITALOPRAM HYDROBROMIDE
     Dosage: 20 MG, QD
     Route: 048
  5. CELEXA [Concomitant]
     Active Substance: CITALOPRAM HYDROBROMIDE
     Dosage: 20 MG, QD
     Route: 048
  6. SIMVASTATIN. [Concomitant]
     Active Substance: SIMVASTATIN
     Dosage: 10 MG, QD
     Route: 048
  7. COUMADIN [Concomitant]
     Active Substance: WARFARIN SODIUM
     Dosage: 5 MG, QD
     Route: 048
  8. METOPROLOL. [Concomitant]
     Active Substance: METOPROLOL
     Dosage: 25 MG, QD
     Route: 048
  9. LISINOPRIL. [Concomitant]
     Active Substance: LISINOPRIL
     Dosage: 5 MG, QD
     Route: 048

REACTIONS (3)
  - Hip fracture [Recovered/Resolved]
  - Contusion [Recovered/Resolved]
  - Fall [Recovered/Resolved]

NARRATIVE: CASE EVENT DATE: 20140102
